FAERS Safety Report 7909648-0 (Version None)
Quarter: 2011Q4

REPORT INFORMATION
  Report Type: 
  Country: None (occurrence: None)
  Receive Date: 20111111
  Receipt Date: 20111104
  Transmission Date: 20120403
  Serious: Yes (Other)
  Sender: FDA-Public Use
  Company Number: US-GLAXOSMITHKLINE-A0952028A

PATIENT
  Age: 48 Year
  Sex: Female

DRUGS (7)
  1. DESYREL [Concomitant]
  2. KLONOPIN [Concomitant]
  3. WELLBUTRIN [Concomitant]
  4. TRILAFON [Concomitant]
  5. SPIRIVA [Concomitant]
  6. ADVAIR DISKUS 100/50 [Suspect]
     Indication: CHRONIC OBSTRUCTIVE PULMONARY DISEASE
     Dosage: 1PUFF TWICE PER DAY
     Route: 055
     Dates: start: 20111001, end: 20111020
  7. SAPHRIS [Concomitant]

REACTIONS (3)
  - SUICIDAL IDEATION [None]
  - HOMICIDAL IDEATION [None]
  - DEPRESSION [None]
